FAERS Safety Report 23057108 (Version 2)
Quarter: 2024Q1

REPORT INFORMATION
  Report Type: Report from Study
  Country: CA (occurrence: CA)
  Receive Date: 20231012
  Receipt Date: 20240124
  Transmission Date: 20240410
  Serious: Yes (Death)
  Sender: FDA-Public Use
  Company Number: CA-CELLTRION INC.-2023CA019332

PATIENT

DRUGS (5)
  1. RITUXIMAB [Suspect]
     Active Substance: RITUXIMAB
     Indication: Rheumatoid arthritis
     Dosage: 1000 MILLIGRAM
     Route: 042
  2. RITUXIMAB [Suspect]
     Active Substance: RITUXIMAB
     Dosage: 1000 MILLIGRAM
     Route: 042
  3. DIPHENHYDRAMINE [Concomitant]
     Active Substance: DIPHENHYDRAMINE
     Dosage: 50 MILLIGRAM
     Route: 048
  4. METHYLPREDNISOLONE [Concomitant]
     Active Substance: METHYLPREDNISOLONE
     Dosage: 100 MILLIGRAM
     Route: 042
  5. SODIUM CHLORIDE [Concomitant]
     Active Substance: SODIUM CHLORIDE
     Route: 065

REACTIONS (19)
  - Death [Fatal]
  - Bone pain [Fatal]
  - Feeling cold [Fatal]
  - Feeling hot [Fatal]
  - Peripheral swelling [Fatal]
  - Skin discolouration [Fatal]
  - Back pain [Fatal]
  - Cough [Fatal]
  - Diarrhoea [Fatal]
  - Fatigue [Fatal]
  - Headache [Fatal]
  - Hypoaesthesia [Fatal]
  - Illness [Fatal]
  - Pain [Fatal]
  - Pyrexia [Fatal]
  - Sneezing [Fatal]
  - Vomiting [Fatal]
  - Throat irritation [Fatal]
  - Influenza [Fatal]
